FAERS Safety Report 12382088 (Version 2)
Quarter: 2016Q2

REPORT INFORMATION
  Report Type: Report from Study
  Country: CA (occurrence: CA)
  Receive Date: 20160518
  Receipt Date: 20160523
  Transmission Date: 20160815
  Serious: No
  Sender: FDA-Public Use
  Company Number: CA-JNJFOC-20160513466

PATIENT
  Sex: Female
  Weight: 2.58 kg

DRUGS (1)
  1. STELARA [Suspect]
     Active Substance: USTEKINUMAB
     Indication: PSORIASIS
     Dosage: PARENT DOSING
     Route: 064
     Dates: start: 20130727

REACTIONS (1)
  - Foetal exposure during pregnancy [Recovered/Resolved]
